FAERS Safety Report 20337085 (Version 2)
Quarter: 2022Q1

REPORT INFORMATION
  Report Type: Spontaneous
  Country: US (occurrence: US)
  Receive Date: 20220114
  Receipt Date: 20220127
  Transmission Date: 20220423
  Serious: Yes (Life-Threatening, Hospitalization, Other)
  Sender: FDA-Public Use
  Company Number: US-009507513-2201USA002219

PATIENT
  Age: 31 Year
  Sex: Female

DRUGS (5)
  1. FOSAPREPITANT DIMEGLUMINE [Suspect]
     Active Substance: FOSAPREPITANT DIMEGLUMINE
     Dosage: UNK
     Route: 042
     Dates: start: 20211206, end: 20211206
  2. PACLITAXEL [Suspect]
     Active Substance: PACLITAXEL
     Dosage: UNK
     Dates: start: 20211206
  3. KEYTRUDA [Concomitant]
     Active Substance: PEMBROLIZUMAB
     Dosage: UNK
  4. CARBOPLATIN [Concomitant]
     Active Substance: CARBOPLATIN
     Dosage: UNK
  5. DESVENLAFAXINE [Concomitant]
     Active Substance: DESVENLAFAXINE

REACTIONS (3)
  - Flushing [Recovered/Resolved]
  - Chest discomfort [Recovered/Resolved]
  - Adverse reaction [Recovered/Resolved]

NARRATIVE: CASE EVENT DATE: 20211206
